FAERS Safety Report 19711767 (Version 1)
Quarter: 2021Q3

REPORT INFORMATION
  Report Type: Report from Study
  Country: US (occurrence: US)
  Receive Date: 20210816
  Receipt Date: 20210816
  Transmission Date: 20211014
  Serious: Yes (Other)
  Sender: FDA-Public Use
  Company Number: NVSC2021US171953

PATIENT
  Age: 33 Year
  Sex: Male

DRUGS (2)
  1. KESIMPTA [Suspect]
     Active Substance: OFATUMUMAB
     Dosage: UNK
     Route: 065
  2. KESIMPTA [Suspect]
     Active Substance: OFATUMUMAB
     Indication: RELAPSING-REMITTING MULTIPLE SCLEROSIS
     Route: 058
     Dates: start: 20210611

REACTIONS (8)
  - Optic neuritis [Not Recovered/Not Resolved]
  - Product supply issue [Unknown]
  - Vision blurred [Unknown]
  - Panic reaction [Unknown]
  - Eye swelling [Unknown]
  - Hypertension [Unknown]
  - Visual field defect [Not Recovered/Not Resolved]
  - Stress [Not Recovered/Not Resolved]

NARRATIVE: CASE EVENT DATE: 20210611
